FAERS Safety Report 17646754 (Version 1)
Quarter: 2020Q2

REPORT INFORMATION
  Report Type: Spontaneous
  Country: US (occurrence: US)
  Receive Date: 20200408
  Receipt Date: 20200408
  Transmission Date: 20200713
  Serious: No
  Sender: FDA-Public Use
  Company Number: US-PFIZER INC-2020144847

PATIENT
  Age: 65 Year
  Sex: Female

DRUGS (4)
  1. VITAMIN D3 [Concomitant]
     Active Substance: CHOLECALCIFEROL
     Dosage: UNK
  2. L-METHYLFOLATE [Concomitant]
     Active Substance: LEVOMEFOLIC ACID
     Dosage: UNK
  3. IBRANCE [Suspect]
     Active Substance: PALBOCICLIB
     Indication: BREAST CANCER FEMALE
     Dosage: 125 MG, CYCLIC(1 CAPSULE DAILY FOR 21 DAYS ON, 7 DAY)
     Route: 048
     Dates: start: 20200227
  4. VAGIFEM [Concomitant]
     Active Substance: ESTRADIOL
     Dosage: UNK

REACTIONS (4)
  - Asthenia [Unknown]
  - White blood cell count decreased [Unknown]
  - Constipation [Unknown]
  - Fatigue [Unknown]
